FAERS Safety Report 7802231-7 (Version None)
Quarter: 2011Q4

REPORT INFORMATION
  Report Type: 
  Country: None (occurrence: None)
  Receive Date: 20111007
  Receipt Date: 20110926
  Transmission Date: 20120403
  Serious: Yes (Other)
  Sender: FDA-Public Use
  Company Number: US-JNJFOC-20111000894

PATIENT
  Sex: Female

DRUGS (2)
  1. SUDAFED 12 HOUR [Suspect]
     Route: 048
  2. SUDAFED 12 HOUR [Suspect]
     Indication: PRODUCT USED FOR UNKNOWN INDICATION
     Dosage: DAILY FOR YEARS
     Route: 048

REACTIONS (3)
  - WITHDRAWAL SYNDROME [None]
  - INTENTIONAL DRUG MISUSE [None]
  - DYSPNOEA [None]
